FAERS Safety Report 18746861 (Version 1)
Quarter: 2021Q1

REPORT INFORMATION
  Report Type: Spontaneous
  Country: US (occurrence: US)
  Receive Date: 20210115
  Receipt Date: 20210115
  Transmission Date: 20210419
  Serious: No
  Sender: FDA-Public Use
  Company Number: US-PARI RESPIRATORY EQUIPMENT, INC.-2020PAR00029

PATIENT
  Age: 11 Year
  Sex: Female
  Weight: 41.27 kg

DRUGS (4)
  1. BENEPROTEIN 6 G?25/7 G POWDER [Concomitant]
  2. KITABIS PAK [Suspect]
     Active Substance: TOBRAMYCIN
     Indication: PSEUDOMONAS INFECTION
  3. KITABIS PAK [Suspect]
     Active Substance: TOBRAMYCIN
     Indication: TRACHEOSTOMY
     Dosage: 300 MG (1 AMPULE) VIA NEBULIZER, 2X/DAY FOR 28 DAYS ON AND 28 DAYS OFF
     Dates: start: 20200108
  4. PROBIOTIC 10B CELL [Concomitant]

REACTIONS (2)
  - Off label use [Not Recovered/Not Resolved]
  - Urinary tract infection [Recovered/Resolved]

NARRATIVE: CASE EVENT DATE: 20200108
